FAERS Safety Report 4782444-1 (Version None)
Quarter: 2005Q3

REPORT INFORMATION
  Report Type: 
  Country: None (occurrence: None)
  Receive Date: 20050929
  Receipt Date: 20041101
  Transmission Date: 20060218
  Serious: No
  Sender: FDA-Public Use
  Company Number: US-GLAXOSMITHKLINE-A0532218A

PATIENT
  Age: 76 Year
  Sex: Female
  Weight: 59.5 kg

DRUGS (9)
  1. COREG [Suspect]
     Dosage: 6.25MG TWICE PER DAY
     Route: 048
     Dates: start: 20040801
  2. LASIX [Concomitant]
     Dosage: 20MG PER DAY
     Route: 048
  3. FOSAMAX [Concomitant]
     Dosage: 70MG WEEKLY
     Route: 048
  4. VASOTEC [Concomitant]
     Dosage: 2.5MGM PER DAY
     Route: 048
  5. COUMADIN [Concomitant]
     Dosage: 2.5MGM AS REQUIRED
  6. SPIRONOLACTONE [Concomitant]
     Dosage: 25MGM PER DAY
  7. PRILOSEC [Concomitant]
     Dosage: 10MGM PER DAY
  8. PREMARIN [Concomitant]
     Dosage: .625MGM PER DAY
  9. CALCIUM D [Concomitant]

REACTIONS (1)
  - ALOPECIA [None]
